FAERS Safety Report 23321582 (Version 1)
Quarter: 2023Q4

REPORT INFORMATION
  Report Type: Spontaneous
  Country: PT (occurrence: PT)
  Receive Date: 20231220
  Receipt Date: 20231220
  Transmission Date: 20240109
  Serious: Yes (Other)
  Sender: FDA-Public Use
  Company Number: PT-009507513-2312PRT001645

PATIENT
  Age: 54 Year
  Sex: Male

DRUGS (10)
  1. EFAVIRENZ [Suspect]
     Active Substance: EFAVIRENZ
     Indication: Product used for unknown indication
     Dosage: UNK
     Route: 048
     Dates: start: 2008
  2. BICTEGRAVIR\EMTRICITABINE\TENOFOVIR ALAFENAMIDE [Suspect]
     Active Substance: BICTEGRAVIR\EMTRICITABINE\TENOFOVIR ALAFENAMIDE
     Indication: Product used for unknown indication
     Dosage: UNK
     Dates: start: 2019
  3. EMTRICITABINE\TENOFOVIR DISOPROXIL FUMARATE [Suspect]
     Active Substance: EMTRICITABINE\TENOFOVIR DISOPROXIL FUMARATE
     Indication: Product used for unknown indication
     Dosage: UNK
     Dates: start: 2008
  4. PITAVASTATIN [Concomitant]
     Active Substance: PITAVASTATIN
     Indication: Product used for unknown indication
  5. SOMATROPIN [Concomitant]
     Active Substance: SOMATROPIN
     Indication: Product used for unknown indication
  6. LUTEINISING HORMONE [Concomitant]
     Indication: Product used for unknown indication
  7. IVABRADINE [Concomitant]
     Active Substance: IVABRADINE
     Indication: Product used for unknown indication
  8. BISOPROLOL [Concomitant]
     Active Substance: BISOPROLOL\BISOPROLOL FUMARATE
     Indication: Product used for unknown indication
  9. METFORMIN [Concomitant]
     Active Substance: METFORMIN HYDROCHLORIDE
     Indication: Product used for unknown indication
  10. EZETIMIBE [Concomitant]
     Active Substance: EZETIMIBE
     Indication: Product used for unknown indication

REACTIONS (7)
  - HIV-associated neurocognitive disorder [Unknown]
  - Depression [Unknown]
  - CD4 lymphocytes increased [Unknown]
  - Amnesia [Unknown]
  - Weight increased [Unknown]
  - Abnormal dreams [Unknown]
  - Fatigue [Unknown]

NARRATIVE: CASE EVENT DATE: 20090101
